FAERS Safety Report 25525534 (Version 2)
Quarter: 2025Q3

REPORT INFORMATION
  Report Type: Spontaneous
  Country: CN (occurrence: CN)
  Receive Date: 20250707
  Receipt Date: 20250708
  Transmission Date: 20251020
  Serious: Yes (Hospitalization)
  Sender: BAYER HEALTHCARE PHARMACEUTICALS INC.
  Company Number: CN-BAYER-2025A088985

PATIENT
  Age: 54 Year
  Sex: Female
  Weight: 50 kg

DRUGS (1)
  1. AVELOX [Suspect]
     Active Substance: MOXIFLOXACIN HYDROCHLORIDE
     Indication: Pulmonary mass
     Dosage: 0.4 G, QD
     Route: 048
     Dates: start: 20250617, end: 20250630

REACTIONS (9)
  - Photoelectric conjunctivitis [Recovered/Resolved]
  - Headache [Recovered/Resolved]
  - Photoelectric conjunctivitis [Recovering/Resolving]
  - Headache [Recovering/Resolving]
  - Photophobia [Recovered/Resolved]
  - Conjunctival hyperaemia [Recovered/Resolved]
  - Conjunctival hyperaemia [Recovering/Resolving]
  - Product use in unapproved indication [None]
  - Product prescribing issue [None]

NARRATIVE: CASE EVENT DATE: 20250617
